FAERS Safety Report 16715893 (Version 1)
Quarter: 2019Q3

REPORT INFORMATION
  Report Type: Report from Study
  Country: AR (occurrence: AR)
  Receive Date: 20190819
  Receipt Date: 20190819
  Transmission Date: 20191005
  Serious: Yes (Other)
  Sender: FDA-Public Use
  Company Number: AR-ACTELION-A-CH2019-186565

PATIENT
  Age: 71 Year
  Sex: Female
  Weight: 58 kg

DRUGS (3)
  1. OXYGEN. [Concomitant]
     Active Substance: OXYGEN
  2. SILDENAFIL. [Concomitant]
     Active Substance: SILDENAFIL
  3. OPSUMIT [Suspect]
     Active Substance: MACITENTAN
     Indication: PULMONARY ARTERIAL HYPERTENSION
     Dosage: 10 MG, QD
     Route: 048
     Dates: start: 201809

REACTIONS (8)
  - Liver disorder [Recovering/Resolving]
  - Neuropathy peripheral [Unknown]
  - Musculoskeletal pain [Unknown]
  - Osteoarthritis [Unknown]
  - Agitation [Recovering/Resolving]
  - Influenza [Recovering/Resolving]
  - Pyrexia [Recovering/Resolving]
  - Bronchitis [Recovering/Resolving]

NARRATIVE: CASE EVENT DATE: 201812
